FAERS Safety Report 6652890-X (Version None)
Quarter: 2010Q1

REPORT INFORMATION
  Report Type: 
  Country: None (occurrence: None)
  Receive Date: 20100325
  Receipt Date: 20100325
  Transmission Date: 20100710
  Serious: No
  Sender: FDA-Public Use
  Company Number: None

PATIENT
  Age: 9 Year
  Sex: Female

DRUGS (1)
  1. PPD SANOFI PASTEUR [Suspect]
     Dosage: L FOREARM/ID
     Route: 026

REACTIONS (1)
  - HEADACHE [None]
